FAERS Safety Report 6945884-8 (Version None)
Quarter: 2010Q3

REPORT INFORMATION
  Report Type: 
  Country: None (occurrence: None)
  Receive Date: 20100827
  Receipt Date: 20100816
  Transmission Date: 20110219
  Serious: Yes (Other)
  Sender: FDA-Public Use
  Company Number: PHHY2010DK37064

PATIENT
  Age: 65 Year
  Sex: Female

DRUGS (3)
  1. RASILEZ [Suspect]
  2. AMLODIPINE [Suspect]
  3. CORODIL [Suspect]

REACTIONS (6)
  - CONFUSIONAL STATE [None]
  - DISTURBANCE IN ATTENTION [None]
  - FATIGUE [None]
  - FEELING ABNORMAL [None]
  - HEADACHE [None]
  - MIGRAINE [None]
